FAERS Safety Report 6527741-4 (Version None)
Quarter: 2010Q1

REPORT INFORMATION
  Report Type: 
  Country: None (occurrence: None)
  Receive Date: 20100106
  Receipt Date: 20100104
  Transmission Date: 20100710
  Serious: Yes (Life-Threatening, Hospitalization)
  Sender: FDA-Public Use
  Company Number: CA-TEVA-214287USA

PATIENT
  Sex: Male

DRUGS (4)
  1. METFORMIN HYDROCHLORIDE [Suspect]
     Indication: HYPERGLYCAEMIA
     Route: 048
     Dates: start: 20090714, end: 20090801
  2. DYAZIDE [Suspect]
     Dosage: 50/25 MG
     Route: 048
     Dates: start: 20090714
  3. GLIBENCLAMIDE [Concomitant]
     Route: 048
     Dates: start: 20090714
  4. TRANDOLAPRIL [Concomitant]
     Route: 048
     Dates: start: 20090714

REACTIONS (3)
  - BLOOD GLUCOSE ABNORMAL [None]
  - CELLULITIS [None]
  - SKIN INFECTION [None]
